FAERS Safety Report 25236151 (Version 1)
Quarter: 2025Q2

REPORT INFORMATION
  Report Type: Spontaneous
  Country: US (occurrence: None)
  Receive Date: 20250424
  Receipt Date: 20250424
  Transmission Date: 20250716
  Serious: Yes (Hospitalization)
  Sender: FDA-CTU
  Company Number: None

PATIENT
  Age: 40 Year
  Sex: Male

DRUGS (16)
  1. MYCOPHENOLIC ACID [Suspect]
     Active Substance: MYCOPHENOLIC ACID
     Indication: Prophylaxis against transplant rejection
     Route: 048
  2. TACROLIMUS [Suspect]
     Active Substance: TACROLIMUS
     Indication: Prophylaxis against transplant rejection
     Dosage: FREQUENCY : TWICE A DAY;?
     Route: 048
  3. Atorvastatin 10 mg tabs [Concomitant]
  4. Atovaquone 750 mg/5 ml susp [Concomitant]
  5. Carvedilol 12.5 mg tabs [Concomitant]
  6. HUMULIN N U-100 KWIKPEN [Concomitant]
  7. NIFEDIPINE 90 MG ER [Concomitant]
  8. Omeprazole 40 mg caps [Concomitant]
  9. Prednisone 5 mg tabs [Concomitant]
  10. valganciclovir 450 mg tabs [Concomitant]
  11. Sulfameth/Trimeth 400 mg -80 mg tabs [Concomitant]
  12. LANTUS SOLOSTAR PEN INJ 5 X 3ML [Concomitant]
  13. FUROSEMIDE [Concomitant]
     Active Substance: FUROSEMIDE
  14. LISINOPRIL [Concomitant]
     Active Substance: LISINOPRIL
  15. CLONIDINE [Concomitant]
     Active Substance: CLONIDINE
  16. NICOTINE 14MG/24H PATCH 14^S [Concomitant]

REACTIONS (5)
  - Renal pain [None]
  - Diarrhoea [None]
  - Nausea [None]
  - Vomiting [None]
  - Bacterial infection [None]

NARRATIVE: CASE EVENT DATE: 20250402
